FAERS Safety Report 5416429-9 (Version None)
Quarter: 2007Q3

REPORT INFORMATION
  Report Type: 
  Country: None (occurrence: None)
  Receive Date: 20070816
  Receipt Date: 20070807
  Transmission Date: 20080115
  Serious: Yes (Hospitalization, Other)
  Sender: FDA-Public Use
  Company Number: US-JNJFOC-20070801959

PATIENT
  Sex: Female

DRUGS (4)
  1. DURAGESIC-100 [Suspect]
     Indication: PAIN
     Route: 062
  2. REQUIP [Concomitant]
     Indication: RESTLESS LEGS SYNDROME
     Dosage: ONE AT BEDTIME
     Route: 048
  3. TRAZODONE HCL [Concomitant]
     Indication: BRUXISM
     Dosage: ONE AT BEDTIME
     Route: 048
  4. PROVIGIL [Concomitant]
     Indication: HYPERSOMNIA
     Route: 048

REACTIONS (6)
  - BLOOD CHOLESTEROL INCREASED [None]
  - DEPRESSION [None]
  - ENDOMETRIOSIS [None]
  - FLUID RETENTION [None]
  - NEURALGIA [None]
  - WRONG TECHNIQUE IN DRUG USAGE PROCESS [None]
